FAERS Safety Report 5369249-8 (Version None)
Quarter: 2007Q2

REPORT INFORMATION
  Report Type: 
  Country: None (occurrence: None)
  Receive Date: 20070625
  Receipt Date: 20070301
  Transmission Date: 20071010
  Serious: No
  Sender: FDA-Public Use
  Company Number: US-ASTRAZENECA-2007UW03970

PATIENT
  Age: 49 Year
  Sex: Male
  Weight: 85.7 kg

DRUGS (2)
  1. CRESTOR [Suspect]
     Indication: BLOOD CHOLESTEROL INCREASED
     Route: 048
     Dates: start: 20061201
  2. VIAGRA [Concomitant]

REACTIONS (1)
  - SEXUAL DYSFUNCTION [None]
